FAERS Safety Report 5968181-6 (Version None)
Quarter: 2008Q4

REPORT INFORMATION
  Report Type: 
  Country: None (occurrence: None)
  Receive Date: 20081122
  Receipt Date: 20081122
  Transmission Date: 20090506
  Serious: Yes (Hospitalization)
  Sender: FDA-Public Use
  Company Number: None

PATIENT
  Sex: Female
  Weight: 68 kg

DRUGS (3)
  1. FLUOROURACIL [Suspect]
     Dosage: 13145 MG
     Dates: end: 20081029
  2. LEUCOVORIN CALCIUM [Suspect]
     Dosage: 2812 MG
  3. ELOXATIN [Suspect]
     Dosage: 351 MG

REACTIONS (1)
  - SMALL INTESTINAL OBSTRUCTION [None]
